FAERS Safety Report 16173075 (Version 1)
Quarter: 2019Q2

REPORT INFORMATION
  Report Type: Spontaneous
  Country: US (occurrence: US)
  Receive Date: 20190409
  Receipt Date: 20190409
  Transmission Date: 20190711
  Serious: Yes (Death, Other)
  Sender: FDA-Public Use
  Company Number: US-ZYDUS-035650

PATIENT
  Age: 10 Month
  Sex: Female

DRUGS (2)
  1. MYCOPHENOLIC ACID. [Suspect]
     Active Substance: MYCOPHENOLIC ACID
     Indication: IMMUNOSUPPRESSANT DRUG THERAPY
     Route: 065
  2. TACROLIMUS. [Suspect]
     Active Substance: TACROLIMUS
     Indication: IMMUNOSUPPRESSANT DRUG THERAPY
     Route: 065

REACTIONS (7)
  - Intestinal obstruction [Fatal]
  - Aspiration [Unknown]
  - Intestinal perforation [Fatal]
  - Sepsis [Fatal]
  - Vomiting [Unknown]
  - Diaphragmatic hernia [Fatal]
  - Respiratory distress [Unknown]
